FAERS Safety Report 16221566 (Version 1)
Quarter: 2019Q2

REPORT INFORMATION
  Report Type: Spontaneous
  Country: US (occurrence: US)
  Receive Date: 20190422
  Receipt Date: 20190422
  Transmission Date: 20190711
  Serious: Yes (Death)
  Sender: FDA-Public Use
  Company Number: US-MALLINCKRODT-T201903070

PATIENT
  Sex: Female
  Weight: 80 kg

DRUGS (17)
  1. FERROUS SULFATE. [Concomitant]
     Active Substance: FERROUS SULFATE
     Indication: PRODUCT USED FOR UNKNOWN INDICATION
     Dosage: 325 MG, 2 TIMES A DAY
     Route: 048
     Dates: start: 20110703
  2. MOTRIN [Concomitant]
     Active Substance: IBUPROFEN
     Indication: PROCEDURAL PAIN
     Dosage: 600 MG, EVERY 6 HOURS PRN
     Route: 048
     Dates: start: 20110701
  3. PROMETHAZINE [Concomitant]
     Active Substance: PROMETHAZINE\PROMETHAZINE HYDROCHLORIDE
     Indication: VOMITING
  4. DIPHENHYDRAMINE. [Concomitant]
     Active Substance: DIPHENHYDRAMINE
     Indication: PRURITUS
     Dosage: 25 MG, EVERY 4 HOURS AS NEEDED
     Route: 042
     Dates: start: 20110701
  5. OXYCODONE [Suspect]
     Active Substance: OXYCODONE
     Indication: PROCEDURAL PAIN
     Dosage: 10 MG, PRN (EVERY 4 HOURS)
     Route: 048
     Dates: start: 20110701
  6. SIMETHICONE (DIMETHICONE) [Concomitant]
     Active Substance: DIMETHICONE
     Indication: FLATULENCE
     Dosage: 30ML,Q 4HRS PRN
     Route: 048
     Dates: start: 20110704
  7. NAPROXEN. [Concomitant]
     Active Substance: NAPROXEN
     Indication: PRODUCT USED FOR UNKNOWN INDICATION
     Dosage: UNK
     Route: 065
  8. TYLENOL [Concomitant]
     Active Substance: ACETAMINOPHEN
     Indication: PROCEDURAL PAIN
     Dosage: 650 MG, EVERY 4 HOURS PRN
     Route: 048
     Dates: start: 20110701
  9. PROMETHAZINE [Concomitant]
     Active Substance: PROMETHAZINE\PROMETHAZINE HYDROCHLORIDE
     Indication: NAUSEA
     Dosage: 200 ML/HR EVERY 6 HOURS
     Route: 042
     Dates: start: 20110701
  10. ESOMEPRAZOLE. [Concomitant]
     Active Substance: ESOMEPRAZOLE MAGNESIUM
     Indication: PRODUCT USED FOR UNKNOWN INDICATION
     Dosage: 40 MG, DAILY
     Route: 048
     Dates: start: 20110702
  11. ROXICODONE [Suspect]
     Active Substance: OXYCODONE HYDROCHLORIDE
     Indication: PROCEDURAL PAIN
     Dosage: 10 MG, PRN (EVERY 4 HOURS )
     Route: 048
     Dates: start: 20110701
  12. DIPHENHYDRAMINE. [Concomitant]
     Active Substance: DIPHENHYDRAMINE
     Dosage: 25 MG, EVERY 4 HOURS
     Route: 048
     Dates: start: 20110704
  13. ADVIL [Concomitant]
     Active Substance: IBUPROFEN
     Indication: PROCEDURAL PAIN
     Dosage: 600 MG, EVERY 6 HOURS PRN
     Route: 048
     Dates: start: 20110701
  14. ZOFRAN [Concomitant]
     Active Substance: ONDANSETRON HYDROCHLORIDE
     Indication: NAUSEA
     Dosage: 4 MG, EVERY 6 HOURS PRN
     Route: 042
     Dates: start: 20110701
  15. NALOXONE [Concomitant]
     Active Substance: NALOXONE
     Indication: RESPIRATORY RATE DECREASED
     Dosage: 0.2 MG, ONCE AS NEEDED
     Route: 042
     Dates: start: 20110701
  16. PERCOCET [Concomitant]
     Active Substance: ACETAMINOPHEN\OXYCODONE HYDROCHLORIDE
     Indication: PROCEDURAL PAIN
     Dosage: 5/325 MG EVERY 6 HOURS
     Route: 048
  17. COLACE [Concomitant]
     Active Substance: DOCUSATE SODIUM
     Indication: PRODUCT USED FOR UNKNOWN INDICATION
     Dosage: 100 MG 2 TIMES A DAY
     Route: 048
     Dates: start: 20110701

REACTIONS (2)
  - Arteriosclerosis [Fatal]
  - Hypertensive heart disease [Fatal]
